FAERS Safety Report 11860645 (Version 2)
Quarter: 2016Q3

REPORT INFORMATION
  Report Type: Report from Study
  Country: JP (occurrence: JP)
  Receive Date: 20151222
  Receipt Date: 20160729
  Transmission Date: 20161109
  Serious: Yes (Other)
  Sender: FDA-Public Use
  Company Number: JP-009507513-1512JPN011286

PATIENT
  Age: 79 Year
  Sex: Female
  Weight: 57.9 kg

DRUGS (10)
  1. EBRANTIL [Concomitant]
     Active Substance: URAPIDIL
     Dosage: UNK
  2. LOCHOL (FLUVASTATIN SODIUM) [Concomitant]
     Active Substance: FLUVASTATIN SODIUM
     Dosage: UNK
  3. ZYLORIC [Concomitant]
     Active Substance: ALLOPURINOL
     Dosage: UNK
  4. NITOROL-R [Concomitant]
     Dosage: UNK
  5. BAYASPIRIN [Concomitant]
     Active Substance: ASPIRIN
     Dosage: UNK
  6. BUFFERIN [Concomitant]
     Active Substance: ASPIRIN
     Dosage: UNK
  7. URITOS [Concomitant]
     Active Substance: IMIDAFENACIN
     Dosage: UNK
  8. GLACTIV [Suspect]
     Active Substance: SITAGLIPTIN
     Indication: TYPE 2 DIABETES MELLITUS
     Dosage: 25 MG, ONCE A DAY, AFTER BREAKFAST
     Route: 048
     Dates: start: 20110627, end: 20130729
  9. GLIMICRON [Concomitant]
     Active Substance: GLICLAZIDE
     Dosage: UNK
  10. ULCERLMIN [Concomitant]
     Active Substance: SUCRALFATE
     Dosage: UNK

REACTIONS (1)
  - Duodenal ulcer [Recovered/Resolved]

NARRATIVE: CASE EVENT DATE: 20130727
